FAERS Safety Report 18427712 (Version 1)
Quarter: 2020Q4

REPORT INFORMATION
  Report Type: Spontaneous
  Country: US (occurrence: US)
  Receive Date: 20201026
  Receipt Date: 20201026
  Transmission Date: 20210114
  Serious: No
  Sender: FDA-Public Use
  Company Number: US-BIOHAVEN PHARMACEUTICALS-2020BHV00296

PATIENT
  Age: 75 Year
  Sex: Male
  Weight: 83.9 kg

DRUGS (2)
  1. UNSPECIFIED OTHER MEDS [Concomitant]
     Active Substance: UNSPECIFIED INGREDIENT
  2. NURTEC ODT [Suspect]
     Active Substance: RIMEGEPANT SULFATE
     Indication: MIGRAINE
     Dosage: 75 MG, UP TO 1X/DAY AS NEEDED
     Route: 048
     Dates: start: 20200809

REACTIONS (3)
  - Product taste abnormal [Unknown]
  - Dyspepsia [Recovered/Resolved]
  - Product solubility abnormal [Unknown]

NARRATIVE: CASE EVENT DATE: 20200809
